FAERS Safety Report 14034548 (Version 2)
Quarter: 2017Q4

REPORT INFORMATION
  Report Type: Spontaneous
  Country: US (occurrence: US)
  Receive Date: 20171003
  Receipt Date: 20171011
  Transmission Date: 20180321
  Serious: Yes (Other)
  Sender: FDA-Public Use
  Company Number: US-009507513-1709USA014983

PATIENT
  Age: 76 Year
  Sex: Male

DRUGS (1)
  1. COZAAR [Suspect]
     Active Substance: LOSARTAN POTASSIUM
     Indication: HYPERTENSION
     Dosage: 50 MG TABLET DAILY
     Route: 048
     Dates: start: 20161118

REACTIONS (1)
  - Urticarial vasculitis [Unknown]

NARRATIVE: CASE EVENT DATE: 201612
